FAERS Safety Report 18508617 (Version 1)
Quarter: 2020Q4

REPORT INFORMATION
  Report Type: Other
  Country: CA (occurrence: CA)
  Receive Date: 20201117
  Receipt Date: 20201117
  Transmission Date: 20210114
  Serious: Yes (Other)
  Sender: FDA-Public Use
  Company Number: CA-CELLTRION INC.-2020CA031232

PATIENT

DRUGS (15)
  1. LEUCOVORIN CALCIUM. [Concomitant]
     Active Substance: LEUCOVORIN CALCIUM
  2. PREDNISONE. [Suspect]
     Active Substance: PREDNISONE
     Dosage: 8 MILLIGRAM
     Route: 065
  3. PREDNISONE. [Suspect]
     Active Substance: PREDNISONE
     Indication: PRODUCT USED FOR UNKNOWN INDICATION
     Route: 065
  4. TYLENOL [Concomitant]
     Active Substance: ACETAMINOPHEN
     Indication: PREMEDICATION
     Dosage: 650 MILLIGRAM
     Route: 048
  5. RITUXIMAB (UNKNOWN) [Suspect]
     Active Substance: RITUXIMAB
     Dosage: 1000 MILLIGRAM 1 EVERY 15 DAYS
     Route: 042
  6. PREDNISONE. [Suspect]
     Active Substance: PREDNISONE
     Dosage: 10 MILLIGRAM 1 EVERY 1 DAYS
     Route: 065
  7. BENADRYL [Concomitant]
     Active Substance: DIPHENHYDRAMINE HYDROCHLORIDE
     Indication: PREMEDICATION
     Dosage: 50 MILLIGRAM
     Route: 048
  8. INSULIN [Concomitant]
     Active Substance: INSULIN NOS
  9. RITUXIMAB (UNKNOWN) [Suspect]
     Active Substance: RITUXIMAB
     Dosage: 500 MILLIGRAM
     Route: 042
  10. METHYLPREDNISOLONE SODIUM SUCCINATE. [Concomitant]
     Active Substance: METHYLPREDNISOLONE SODIUM SUCCINATE
     Indication: PREMEDICATION
     Dosage: 100 MILLIGRAM
     Route: 042
  11. PULMICORT TURBUHALER [Concomitant]
     Active Substance: BUDESONIDE
  12. RITUXIMAB (UNKNOWN) [Suspect]
     Active Substance: RITUXIMAB
     Indication: GRANULOMATOSIS WITH POLYANGIITIS
     Dosage: 1000 MILLIGRAM
     Route: 042
  13. METHOTREXATE. [Suspect]
     Active Substance: METHOTREXATE
     Indication: PRODUCT USED FOR UNKNOWN INDICATION
     Route: 065
  14. PREDNISONE. [Suspect]
     Active Substance: PREDNISONE
     Indication: PRODUCT USED FOR UNKNOWN INDICATION
     Dosage: 35 MILLIGRAM
     Route: 065
  15. FOLIC ACID. [Concomitant]
     Active Substance: FOLIC ACID

REACTIONS (16)
  - Drug ineffective [Recovered/Resolved]
  - Off label use [Unknown]
  - Antineutrophil cytoplasmic antibody positive [Recovered/Resolved]
  - Granulomatosis with polyangiitis [Recovered/Resolved]
  - Oxygen saturation decreased [Recovered/Resolved]
  - Off label use [Recovered/Resolved]
  - Abdominal discomfort [Recovered/Resolved]
  - Hordeolum [Recovered/Resolved]
  - Intentional product use issue [Recovered/Resolved]
  - Oligomenorrhoea [Recovered/Resolved]
  - Weight increased [Recovered/Resolved]
  - Hypotension [Recovered/Resolved]
  - Sinusitis [Recovered/Resolved]
  - Dose calculation error [Recovered/Resolved]
  - C-reactive protein increased [Recovered/Resolved]
  - Pharyngitis [Recovered/Resolved]
